FAERS Safety Report 18133198 (Version 1)
Quarter: 2020Q3

REPORT INFORMATION
  Report Type: Spontaneous
  Country: US (occurrence: US)
  Receive Date: 20200811
  Receipt Date: 20200811
  Transmission Date: 20201103
  Serious: Yes (Other)
  Sender: FDA-Public Use
  Company Number: US-ROCHE-2656994

PATIENT
  Age: 46 Year
  Sex: Male

DRUGS (1)
  1. ACTEMRA [Suspect]
     Active Substance: TOCILIZUMAB
     Indication: KIDNEY TRANSPLANT REJECTION
     Dosage: ONGOING:NO
     Route: 042
     Dates: start: 202005, end: 202007

REACTIONS (3)
  - Off label use [Unknown]
  - Intentional product use issue [Unknown]
  - Deafness [Unknown]
